FAERS Safety Report 19808710 (Version 1)
Quarter: 2021Q3

REPORT INFORMATION
  Report Type: Spontaneous
  Country: US (occurrence: US)
  Receive Date: 20210908
  Receipt Date: 20210908
  Transmission Date: 20211014
  Serious: Yes (Other)
  Sender: FDA-Public Use
  Company Number: US-009507513-2109USA001275

PATIENT
  Sex: Female

DRUGS (3)
  1. INTRON A [Suspect]
     Active Substance: INTERFERON ALFA-2B
     Dosage: 0.25 MILLILITER (OR 1.5 MILLION UNITS), TIW
     Route: 058
     Dates: start: 20210804
  2. INTRON A [Suspect]
     Active Substance: INTERFERON ALFA-2B
     Indication: CUTANEOUS T-CELL LYMPHOMA
     Dosage: 0.5 MILLILITER (OR 3 MILLION UNITS), TIW
     Route: 058
     Dates: start: 20210322, end: 20210621
  3. ELIQUIS [Concomitant]
     Active Substance: APIXABAN
     Indication: GENERAL SYMPTOM
     Dosage: 5 MILLIGRAM, TWICE A DAY

REACTIONS (2)
  - Neutropenia [Recovered/Resolved]
  - Lymphocyte count abnormal [Unknown]

NARRATIVE: CASE EVENT DATE: 2021
